FAERS Safety Report 8991077 (Version 3)
Quarter: 2013Q2

REPORT INFORMATION
  Report Type: Spontaneous
  Country: JP (occurrence: None)
  Receive Date: 20121220
  Receipt Date: 20130619
  Transmission Date: 20140414
  Serious: Yes (Hospitalization)
  Sender: FDA-Public Use
  Company Number: TCI2012A07152

PATIENT
  Age: 65 Year
  Sex: Male

DRUGS (11)
  1. LANSOPRAZOLE [Suspect]
     Indication: PROPHYLAXIS AGAINST GASTROINTESTINAL ULCER
     Route: 048
     Dates: start: 20111102
  2. BAYASPIRIN (ACETYLSALICYLIC ACID) [Concomitant]
  3. SELBEX (TEPRENONE) [Concomitant]
  4. LONGES (LISINOPRIL) [Concomitant]
  5. PLETAAL OD (CILOSTAZOL) [Concomitant]
  6. SERMION (NICERGOLINE) [Concomitant]
  7. MAGMITT (MAGNESIUM OXIDE) [Concomitant]
  8. SOLACET D (GLUCOSE, SODIUM CHLORIDE COMPOUND INJECTION) [Concomitant]
  9. CEFAMEZIN ALPHA (CEFAZOLIN SODIUM) [Concomitant]
  10. PACETCOOL (CEFOTIAM HYDROCHLORIDE) [Concomitant]
  11. SLONNON (ARGATROBAN) [Concomitant]

REACTIONS (2)
  - Angina pectoris [None]
  - Carotid artery stent insertion [None]
